FAERS Safety Report 19173563 (Version 2)
Quarter: 2021Q2

REPORT INFORMATION
  Report Type: Spontaneous
  Country: US (occurrence: US)
  Receive Date: 20210423
  Receipt Date: 20210520
  Transmission Date: 20210717
  Serious: No
  Sender: FDA-Public Use
  Company Number: US-ASTRAZENECA-2021A230786

PATIENT
  Sex: Female
  Weight: 66.2 kg

DRUGS (2)
  1. TRILOGY [Concomitant]
     Indication: CHRONIC OBSTRUCTIVE PULMONARY DISEASE
     Dosage: 100 MCG/62.5 MCG./25 MCG; 1 TABLET DAILY
  2. BREZTRI AEROSPHERE [Suspect]
     Active Substance: BUDESONIDE\FORMOTEROL\GLYCOPYRRONIUM
     Indication: CHRONIC OBSTRUCTIVE PULMONARY DISEASE
     Dosage: 160 MCG./9 MCG./4.8 MCG., 2 PUFFS TWICE A DAY
     Route: 055
     Dates: start: 202102

REACTIONS (4)
  - Drug ineffective [Not Recovered/Not Resolved]
  - Nasal disorder [Not Recovered/Not Resolved]
  - Wrong technique in product usage process [Not Recovered/Not Resolved]
  - Device malfunction [Unknown]
